FAERS Safety Report 25939152 (Version 1)
Quarter: 2025Q4

REPORT INFORMATION
  Report Type: Report from Study
  Country: CO (occurrence: CO)
  Receive Date: 20251020
  Receipt Date: 20251020
  Transmission Date: 20260117
  Serious: Yes (Other)
  Sender: ABBVIE
  Company Number: CO-ABBVIE-6507653

PATIENT
  Age: 52 Year
  Sex: Male
  Weight: 75 kg

DRUGS (1)
  1. SKYRIZI [Suspect]
     Active Substance: RISANKIZUMAB-RZAA
     Indication: Psoriasis
     Dosage: FORM STRENGTH: 150 MILLIGRAMS
     Route: 058
     Dates: start: 20221022, end: 20250624

REACTIONS (2)
  - Umbilical hernia [Recovering/Resolving]
  - Procedural pain [Unknown]

NARRATIVE: CASE EVENT DATE: 20230101
